FAERS Safety Report 21882796 (Version 2)
Quarter: 2023Q2

REPORT INFORMATION
  Report Type: Spontaneous
  Country: IT (occurrence: IT)
  Receive Date: 20230119
  Receipt Date: 20230620
  Transmission Date: 20230721
  Serious: Yes (Hospitalization, Other)
  Sender: FDA-Public Use
  Company Number: IT-MINISAL02-903594

PATIENT
  Age: 44 Year
  Sex: Female

DRUGS (1)
  1. IBUPROFEN [Suspect]
     Active Substance: IBUPROFEN
     Indication: Headache
     Dosage: 600 MILLIGRAM (600 MG DIE )
     Route: 048
     Dates: start: 20221225, end: 20221225

REACTIONS (4)
  - Anaemia [Recovering/Resolving]
  - Melaena [Recovering/Resolving]
  - Malaise [Unknown]
  - Palpitations [Unknown]

NARRATIVE: CASE EVENT DATE: 20221227
